FAERS Safety Report 18455677 (Version 2)
Quarter: 2021Q1

REPORT INFORMATION
  Report Type: Spontaneous
  Country: US (occurrence: US)
  Receive Date: 20201103
  Receipt Date: 20210120
  Transmission Date: 20210419
  Serious: No
  Sender: FDA-Public Use
  Company Number: US-CELGENEUS-USA-20201007120

PATIENT
  Sex: Female

DRUGS (2)
  1. REVLIMID [Suspect]
     Active Substance: LENALIDOMIDE
     Indication: B-CELL LYMPHOMA
     Dosage: 20 MILLIGRAM
     Route: 048
     Dates: start: 202004
  2. REVLIMID [Suspect]
     Active Substance: LENALIDOMIDE
     Indication: OFF LABEL USE
     Dosage: 10 MILLIGRAMS
     Route: 048
     Dates: start: 202010

REACTIONS (3)
  - Red blood cell count decreased [Not Recovered/Not Resolved]
  - White blood cell count decreased [Not Recovered/Not Resolved]
  - Neutropenia [Unknown]

NARRATIVE: CASE EVENT DATE: 2020
